FAERS Safety Report 6566601-X (Version None)
Quarter: 2010Q1

REPORT INFORMATION
  Report Type: 
  Country: None (occurrence: None)
  Receive Date: 20100127
  Receipt Date: 20100125
  Transmission Date: 20100710
  Serious: Yes (Other)
  Sender: FDA-Public Use
  Company Number: 487359

PATIENT
  Age: 75 Year
  Sex: Female
  Weight: 67.5 kg

DRUGS (4)
  1. VANCOMYCIN HCL [Suspect]
     Indication: DRUG USE FOR UNKNOWN INDICATION
     Dosage: 1 EVERY 1 DAY, INTRAVENOUS
     Route: 042
  2. (BLOOD TRANSFUSION, AUXILIARY PRODUCTS) [Concomitant]
  3. CELEXA [Concomitant]
  4. COUMADIN [Concomitant]

REACTIONS (1)
  - DRUG HYPERSENSITIVITY [None]
